FAERS Safety Report 20712213 (Version 1)
Quarter: 2022Q2

REPORT INFORMATION
  Report Type: Spontaneous
  Country: CA (occurrence: CA)
  Receive Date: 20220414
  Receipt Date: 20220414
  Transmission Date: 20220721
  Serious: Yes (Life-Threatening, Hospitalization)
  Sender: FDA-Public Use
  Company Number: CA-BAXTER-2022BAX007872

PATIENT
  Age: 42 Year
  Sex: Female

DRUGS (8)
  1. CYCLOPHOSPHAMIDE [Suspect]
     Active Substance: CYCLOPHOSPHAMIDE
     Indication: Breast cancer
     Dosage: DOSAGE FORM: NOT SPECIFIED
     Route: 065
  2. CYCLOPHOSPHAMIDE [Suspect]
     Active Substance: CYCLOPHOSPHAMIDE
     Dosage: DOSAGE FORM: NOT SPECIFIED
     Route: 065
  3. DOCETAXEL [Suspect]
     Active Substance: DOCETAXEL
     Indication: Breast cancer
     Dosage: DOSAGE FORM: SOLUTION INTRAVENOUS
     Route: 042
  4. DOCETAXEL [Suspect]
     Active Substance: DOCETAXEL
     Route: 065
  5. MYCOPHENOLATE MOFETIL [Suspect]
     Active Substance: MYCOPHENOLATE MOFETIL
     Indication: Organising pneumonia
     Dosage: DOSAGE FORM: NOT SPECIFIED
     Route: 065
  6. PREDNISONE [Suspect]
     Active Substance: PREDNISONE
     Indication: Organising pneumonia
     Route: 048
  7. PREDNISONE [Suspect]
     Active Substance: PREDNISONE
     Dosage: DOSAGE FORM: NOT SPECIFIED
     Route: 065
  8. TRASTUZUMAB [Suspect]
     Active Substance: TRASTUZUMAB
     Indication: Breast cancer
     Route: 065

REACTIONS (11)
  - Biopsy lung abnormal [Unknown]
  - Bronchial polyp [Unknown]
  - Computerised tomogram thorax abnormal [Unknown]
  - Multifocal micronodular pneumocyte hyperplasia [Unknown]
  - Off label use [Unknown]
  - Product use in unapproved indication [Unknown]
  - Therapeutic response decreased [Unknown]
  - Hypoxia [Unknown]
  - Organising pneumonia [Unknown]
  - Pulmonary oedema [Unknown]
  - Respiratory failure [Unknown]
